FAERS Safety Report 10482091 (Version 1)
Quarter: 2014Q3

REPORT INFORMATION
  Report Type: Spontaneous
  Country: US (occurrence: US)
  Receive Date: 20140929
  Receipt Date: 20140929
  Transmission Date: 20150326
  Serious: No
  Sender: FDA-Public Use
  Company Number: US-BAUSCH-BL-2014-004804

PATIENT
  Age: 61 Year
  Sex: Male
  Weight: 81.72 kg

DRUGS (1)
  1. JUBLIA [Suspect]
     Active Substance: EFINACONAZOLE
     Indication: ONYCHOMYCOSIS
     Route: 061
     Dates: start: 20140829, end: 20140829

REACTIONS (6)
  - Product dropper issue [Recovered/Resolved]
  - Accidental exposure to product [Recovered/Resolved]
  - Application site erythema [Recovered/Resolved]
  - Paraesthesia oral [Recovered/Resolved]
  - Application site swelling [Recovered/Resolved]
  - Lip dry [Recovered/Resolved]

NARRATIVE: CASE EVENT DATE: 20140829
